FAERS Safety Report 6159171-1 (Version None)
Quarter: 2009Q2

REPORT INFORMATION
  Report Type: 
  Country: None (occurrence: None)
  Receive Date: 20090417
  Receipt Date: 20090413
  Transmission Date: 20091009
  Serious: Yes (Hospitalization)
  Sender: FDA-Public Use
  Company Number: US-ASTRAZENECA-2009UW09201

PATIENT
  Sex: Female

DRUGS (5)
  1. SEROQUEL [Suspect]
     Route: 048
  2. NEURONTIN [Concomitant]
     Route: 048
  3. NAPROSYN [Concomitant]
     Route: 048
  4. VICODIN [Concomitant]
     Route: 048
  5. VALIUM [Concomitant]
     Route: 048

REACTIONS (5)
  - BLOOD GLUCOSE INCREASED [None]
  - FALL [None]
  - FEMORAL ARTERY OCCLUSION [None]
  - LEG AMPUTATION [None]
  - SPLENIC INJURY [None]
